FAERS Safety Report 18494382 (Version 4)
Quarter: 2022Q4

REPORT INFORMATION
  Report Type: Report from Study
  Country: US (occurrence: US)
  Receive Date: 20201112
  Receipt Date: 20221208
  Transmission Date: 20230113
  Serious: Yes (Other)
  Sender: FDA-Public Use
  Company Number: NVSC2020US295849

PATIENT
  Sex: Female

DRUGS (1)
  1. KISQALI [Suspect]
     Active Substance: RIBOCICLIB
     Indication: Product used for unknown indication
     Dosage: UNK (VIA MOUTH)
     Route: 048

REACTIONS (6)
  - Lower respiratory tract infection [Unknown]
  - Nasopharyngitis [Unknown]
  - Vomiting [Unknown]
  - Alopecia [Unknown]
  - White blood cell count decreased [Unknown]
  - Speech disorder [Unknown]
